FAERS Safety Report 9156991 (Version 1)
Quarter: 2013Q1

REPORT INFORMATION
  Report Type: Spontaneous
  Country: US (occurrence: US)
  Receive Date: 20130312
  Receipt Date: 20130312
  Transmission Date: 20140127
  Serious: Yes (Other)
  Sender: FDA-Public Use
  Company Number: US-PFIZER INC-2013082032

PATIENT
  Age: 66 Year
  Sex: Male
  Weight: 141 kg

DRUGS (2)
  1. VIAGRA [Suspect]
     Indication: ERECTILE DYSFUNCTION
     Dosage: 600 MG, 1X/DAY
     Dates: start: 1965
  2. VIAGRA [Suspect]
     Dosage: UNK

REACTIONS (2)
  - Incorrect dose administered [Unknown]
  - Erection increased [Not Recovered/Not Resolved]
